FAERS Safety Report 8278480 (Version 6)
Quarter: 2013Q3

REPORT INFORMATION
  Report Type: Report from Study
  Country: JP (occurrence: JP)
  Receive Date: 20111207
  Receipt Date: 20130822
  Transmission Date: 20140515
  Serious: Yes (Hospitalization, Other)
  Sender: FDA-Public Use
  Company Number: JP-JNJFOC-20111201118

PATIENT
  Age: 47 Year
  Sex: Male
  Weight: 72 kg

DRUGS (29)
  1. STELARA [Suspect]
     Indication: PSORIASIS
     Route: 058
     Dates: start: 20120612, end: 20120612
  2. STELARA [Suspect]
     Indication: PSORIASIS
     Route: 058
     Dates: start: 20110420, end: 20110420
  3. STELARA [Suspect]
     Indication: PSORIASIS
     Route: 058
     Dates: start: 20130326, end: 20130326
  4. STELARA [Suspect]
     Indication: PSORIASIS
     Route: 058
     Dates: start: 20130104, end: 20130104
  5. STELARA [Suspect]
     Indication: PSORIASIS
     Route: 058
     Dates: start: 20120925, end: 20120925
  6. STELARA [Suspect]
     Indication: PSORIASIS
     Route: 058
     Dates: start: 20110520, end: 20110520
  7. STELARA [Suspect]
     Indication: PSORIASIS
     Route: 058
     Dates: start: 20120313, end: 20120313
  8. STELARA [Suspect]
     Indication: PSORIASIS
     Route: 058
     Dates: start: 20130620
  9. STELARA [Suspect]
     Indication: PSORIASIS
     Route: 058
     Dates: start: 20111118, end: 20111118
  10. STELARA [Suspect]
     Indication: PSORIASIS
     Route: 058
     Dates: start: 20110822, end: 20110822
  11. ISCOTIN [Suspect]
     Indication: PROPHYLAXIS
     Route: 048
     Dates: start: 20110330, end: 20110729
  12. ISCOTIN [Suspect]
     Indication: PROPHYLAXIS
     Route: 048
     Dates: start: 20110926, end: 20111215
  13. TIGASON [Concomitant]
     Indication: PSORIASIS
     Route: 048
     Dates: end: 20110729
  14. TIGASON [Concomitant]
     Indication: PSORIASIS
     Route: 048
     Dates: start: 20110822, end: 20110905
  15. SAHNE [Concomitant]
     Indication: PSORIASIS
     Route: 061
  16. BONALFA [Concomitant]
     Indication: PSORIASIS
     Route: 061
  17. LIDOMEX [Concomitant]
     Indication: PSORIASIS
     Route: 061
  18. TOPSYM [Concomitant]
     Indication: PSORIASIS
     Route: 061
  19. OXAROL [Concomitant]
     Indication: PSORIASIS
     Route: 061
  20. AZUNOL [Concomitant]
     Indication: PSORIASIS
     Route: 061
     Dates: end: 20111128
  21. ALLELOCK [Concomitant]
     Indication: PSORIASIS
     Route: 048
     Dates: end: 20110821
  22. OLMETEC [Concomitant]
     Route: 048
  23. LIPITOR [Concomitant]
     Route: 048
  24. CORTRIL [Concomitant]
     Route: 048
  25. THYRADIN S [Concomitant]
     Route: 048
  26. EURAX [Concomitant]
     Indication: PSORIASIS
     Route: 061
  27. METHADERM [Concomitant]
     Indication: PSORIASIS
     Route: 061
  28. PYDOXAL [Concomitant]
     Indication: PRODUCT USED FOR UNKNOWN INDICATION
     Route: 048
     Dates: start: 20110729
  29. NORVASC [Concomitant]
     Route: 048
     Dates: end: 20120107

REACTIONS (3)
  - Gastritis [Recovered/Resolved]
  - Hepatic function abnormal [Recovered/Resolved]
  - Tendon injury [Recovered/Resolved]
